FAERS Safety Report 5701902-6 (Version None)
Quarter: 2008Q2

REPORT INFORMATION
  Report Type: 
  Country: None (occurrence: None)
  Receive Date: 20080411
  Receipt Date: 20080404
  Transmission Date: 20081010
  Serious: Yes (Other)
  Sender: FDA-Public Use
  Company Number: PHEH2008US01451

PATIENT
  Age: 52 Year
  Sex: Female
  Weight: 56.689 kg

DRUGS (4)
  1. GLEEVEC [Suspect]
     Indication: GASTROINTESTINAL STROMAL TUMOUR
     Dosage: 400 MG, QD
     Route: 048
     Dates: start: 20080105, end: 20080112
  2. GLEEVEC [Suspect]
     Dosage: 400 MG, QD
     Route: 048
     Dates: start: 20080117, end: 20080121
  3. GLEEVEC [Suspect]
     Dosage: UNK, UNK
     Route: 048
     Dates: start: 20080327
  4. CIPRO [Suspect]
     Indication: URINARY TRACT INFECTION
     Dates: start: 20080101

REACTIONS (7)
  - ABDOMINAL PAIN [None]
  - BONE OPERATION [None]
  - FALL [None]
  - RASH [None]
  - UPPER LIMB FRACTURE [None]
  - URINARY TRACT INFECTION [None]
  - WRIST FRACTURE [None]
